FAERS Safety Report 19639954 (Version 1)
Quarter: 2021Q3

REPORT INFORMATION
  Report Type: Report from Study
  Country: JP (occurrence: JP)
  Receive Date: 20210730
  Receipt Date: 20210730
  Transmission Date: 20211014
  Serious: Yes (Other)
  Sender: FDA-Public Use
  Company Number: JP-BIOGEN-2021BI01034804

PATIENT
  Age: 38 Year
  Sex: Female

DRUGS (10)
  1. TECFIDERA [Suspect]
     Active Substance: DIMETHYL FUMARATE
     Route: 048
     Dates: start: 20181018
  2. BESTON [Concomitant]
     Indication: CERVICOBRACHIAL SYNDROME
     Route: 048
  3. AFLOQUALONE [Concomitant]
     Active Substance: AFLOQUALONE
     Indication: CERVICOBRACHIAL SYNDROME
     Route: 048
     Dates: start: 20181114, end: 20190619
  4. LOXOPROFEN [Concomitant]
     Active Substance: LOXOPROFEN
     Indication: MIGRAINE
     Route: 048
  5. LANSOPRAZOLE OD [Concomitant]
     Active Substance: LANSOPRAZOLE
     Indication: PROPHYLAXIS
     Route: 048
     Dates: start: 20180927
  6. TECFIDERA [Suspect]
     Active Substance: DIMETHYL FUMARATE
     Indication: MULTIPLE SCLEROSIS
     Route: 048
     Dates: start: 20180927
  7. LYRICA [Concomitant]
     Active Substance: PREGABALIN
     Indication: CERVICOBRACHIAL SYNDROME
     Route: 048
     Dates: start: 20190227
  8. MAXALT [Concomitant]
     Active Substance: RIZATRIPTAN BENZOATE
     Indication: MIGRAINE
     Route: 048
     Dates: start: 20190130
  9. METHYCOBIDE [Concomitant]
     Active Substance: METHYLCOBALAMIN
     Indication: CERVICOBRACHIAL SYNDROME
     Route: 048
  10. BUFFERIN [Concomitant]
     Active Substance: ASPIRIN
     Indication: PROPHYLAXIS
     Route: 048
     Dates: start: 20181004

REACTIONS (1)
  - Multiple sclerosis relapse [Recovered/Resolved]

NARRATIVE: CASE EVENT DATE: 20190701
